FAERS Safety Report 6383746-8 (Version None)
Quarter: 2009Q4

REPORT INFORMATION
  Report Type: 
  Country: None (occurrence: None)
  Receive Date: 20091001
  Receipt Date: 20090922
  Transmission Date: 20100525
  Serious: Yes (Death)
  Sender: FDA-Public Use
  Company Number: US-BAXTER-2009BH014217

PATIENT
  Age: 25 Month
  Sex: Female
  Weight: 8 kg

DRUGS (1)
  1. GAMMAGARD LIQUID [Suspect]
     Indication: SECONDARY IMMUNODEFICIENCY
     Route: 042

REACTIONS (1)
  - LEUKAEMIA [None]
